FAERS Safety Report 23751141 (Version 2)
Quarter: 2024Q4

REPORT INFORMATION
  Report Type: Report from Study
  Country: FR (occurrence: FR)
  Receive Date: 20240417
  Receipt Date: 20241030
  Transmission Date: 20250115
  Serious: Yes (Other)
  Sender: AUROBINDO
  Company Number: FR-AUROBINDO-AUR-APL-2015-10812

PATIENT
  Age: 56 Year
  Sex: Female

DRUGS (1)
  1. DOCETAXEL [Suspect]
     Active Substance: DOCETAXEL
     Indication: Invasive lobular breast carcinoma
     Dosage: UNK
     Route: 065

REACTIONS (8)
  - Administration site extravasation [Unknown]
  - Injection site extravasation [Unknown]
  - Scleroderma [Unknown]
  - Skin necrosis [Unknown]
  - Skin discolouration [Unknown]
  - Toxicity to various agents [Unknown]
  - Skin induration [Unknown]
  - Systemic scleroderma [Unknown]
